FAERS Safety Report 14364766 (Version 1)
Quarter: 2018Q1

REPORT INFORMATION
  Report Type: Spontaneous
  Country: US (occurrence: US)
  Receive Date: 20180107
  Receipt Date: 20180107
  Transmission Date: 20180509
  Serious: Yes (Disabling, Other)
  Sender: FDA-Public Use
  Company Number: None

PATIENT
  Age: 27 Year
  Sex: Male
  Weight: 103.5 kg

DRUGS (1)
  1. BUPROPION XL 300MG [Suspect]
     Active Substance: BUPROPION
     Indication: DEPRESSION
     Dosage: ?          QUANTITY:30 TABLET(S);?
     Route: 048
     Dates: start: 20171225, end: 20180106

REACTIONS (6)
  - Major depression [None]
  - Heart rate increased [None]
  - Anxiety [None]
  - Drug ineffective [None]
  - Insomnia [None]
  - Product substitution issue [None]

NARRATIVE: CASE EVENT DATE: 20171229
